FAERS Safety Report 9472978 (Version 3)
Quarter: 2013Q4

REPORT INFORMATION
  Report Type: Spontaneous
  Country: US (occurrence: US)
  Receive Date: 20130823
  Receipt Date: 20131125
  Transmission Date: 20140711
  Serious: Yes (Other)
  Sender: FDA-Public Use
  Company Number: US-PFIZER INC-2013241743

PATIENT
  Age: 69 Year
  Sex: Male

DRUGS (7)
  1. LIPITOR [Suspect]
     Indication: HYPERLIPIDAEMIA
     Dosage: UNK
     Dates: start: 2003, end: 2013
  2. LIPITOR [Suspect]
     Dosage: 40 MG, DAILY
     Route: 048
     Dates: start: 20070129, end: 20121207
  3. BENICAR HCT [Concomitant]
     Dosage: UNK
     Dates: start: 200801
  4. GLIPIZIDE [Concomitant]
     Dosage: UNK
     Dates: start: 200901
  5. JANUVIA [Concomitant]
     Dosage: UNK
     Dates: start: 200901
  6. METFORMIN [Concomitant]
     Dosage: UNK
     Dates: start: 201109
  7. METFORMIN [Concomitant]
     Dosage: UNK
     Dates: start: 20070129

REACTIONS (9)
  - Renal injury [Recovered/Resolved]
  - General physical health deterioration [Unknown]
  - Activities of daily living impaired [Recovered/Resolved]
  - Fatigue [Unknown]
  - Chest discomfort [Unknown]
  - Dyspnoea [Unknown]
  - Muscular weakness [Recovered/Resolved]
  - Syncope [Recovered/Resolved]
  - Pain [Unknown]
